FAERS Safety Report 13669513 (Version 2)
Quarter: 2017Q2

REPORT INFORMATION
  Report Type: Spontaneous
  Country: JP (occurrence: JP)
  Receive Date: 20170620
  Receipt Date: 20170627
  Transmission Date: 20170830
  Serious: Yes (Life-Threatening)
  Sender: FDA-Public Use
  Company Number: JP-JNJFOC-20170527107

PATIENT
  Age: 51 Year
  Sex: Male
  Weight: 70 kg

DRUGS (13)
  1. YONDELIS [Suspect]
     Active Substance: TRABECTEDIN
     Indication: UNDIFFERENTIATED SARCOMA
     Route: 041
     Dates: start: 20170223, end: 20170223
  2. PAXIL [Concomitant]
     Active Substance: PAROXETINE HYDROCHLORIDE
     Indication: DEPRESSION
     Route: 048
     Dates: start: 20170314, end: 20170524
  3. YONDELIS [Suspect]
     Active Substance: TRABECTEDIN
     Indication: UNDIFFERENTIATED SARCOMA
     Route: 041
     Dates: start: 20161215
  4. YONDELIS [Suspect]
     Active Substance: TRABECTEDIN
     Indication: UNDIFFERENTIATED SARCOMA
     Route: 041
     Dates: start: 20161020
  5. DOXORUBICIN HYDROCHLORIDE. [Suspect]
     Active Substance: DOXORUBICIN HYDROCHLORIDE
     Indication: UNDIFFERENTIATED SARCOMA
     Route: 041
     Dates: start: 20130819, end: 20131212
  6. HALAVEN [Suspect]
     Active Substance: ERIBULIN MESYLATE
     Indication: UNDIFFERENTIATED SARCOMA
     Route: 041
     Dates: start: 20170406
  7. LASIX [Concomitant]
     Active Substance: FUROSEMIDE
     Indication: CARDIAC FAILURE CONGESTIVE
     Route: 048
     Dates: start: 20170413, end: 20170524
  8. YONDELIS [Suspect]
     Active Substance: TRABECTEDIN
     Indication: UNDIFFERENTIATED SARCOMA
     Route: 041
     Dates: start: 20161110
  9. HALAVEN [Suspect]
     Active Substance: ERIBULIN MESYLATE
     Indication: UNDIFFERENTIATED SARCOMA
     Route: 041
     Dates: start: 20170413, end: 20170413
  10. LOXOPROFEN SODIUM [Concomitant]
     Active Substance: LOXOPROFEN SODIUM
     Indication: PAIN
     Route: 048
     Dates: start: 20130618
  11. LANSOPRAZOLE. [Concomitant]
     Active Substance: LANSOPRAZOLE
     Indication: GASTROOESOPHAGEAL REFLUX DISEASE
     Route: 048
     Dates: start: 20150831
  12. MIYA-BM [Concomitant]
     Active Substance: CLOSTRIDIUM BUTYRICUM SPORES STRAIN M-55
     Indication: DIARRHOEA
     Route: 048
     Dates: start: 20161229
  13. BROTIZOLAM [Concomitant]
     Active Substance: BROTIZOLAM
     Indication: INSOMNIA
     Route: 048
     Dates: start: 20170309

REACTIONS (1)
  - Cardiac failure congestive [Recovering/Resolving]

NARRATIVE: CASE EVENT DATE: 20170524
